FAERS Safety Report 22206845 (Version 1)
Quarter: 2023Q2

REPORT INFORMATION
  Report Type: Spontaneous
  Country: US (occurrence: None)
  Receive Date: 20230412
  Receipt Date: 20230412
  Transmission Date: 20230721
  Serious: No
  Sender: FDA-Public Use
  Company Number: None

PATIENT
  Age: 25 Year
  Sex: Female

DRUGS (1)
  1. KESIMPTA [Suspect]
     Active Substance: OFATUMUMAB
     Indication: Multiple sclerosis
     Dosage: 20MG WEEKS 0.1.2  SUB-Q?
     Route: 058
     Dates: start: 20230403

REACTIONS (6)
  - Headache [None]
  - Nausea [None]
  - Vomiting [None]
  - Confusional state [None]
  - Amnesia [None]
  - Dysarthria [None]

NARRATIVE: CASE EVENT DATE: 20230410
